FAERS Safety Report 18954260 (Version 1)
Quarter: 2021Q1

REPORT INFORMATION
  Report Type: Spontaneous
  Country: BE (occurrence: BE)
  Receive Date: 20210301
  Receipt Date: 20210301
  Transmission Date: 20210420
  Serious: Yes (Hospitalization)
  Sender: FDA-Public Use
  Company Number: BE-GLAXOSMITHKLINE-BECH2021008074

PATIENT
  Age: 34 Year
  Sex: Female

DRUGS (2)
  1. MODERNA COVID?19 VACCINE [Interacting]
     Active Substance: CX-024414
     Indication: COVID-19 IMMUNISATION
     Dosage: UNK (FIRST DOSE ADMINISTERED)
     Route: 065
     Dates: start: 20210202
  2. EXCEDRIN [Suspect]
     Active Substance: ACETAMINOPHEN\ASPIRIN\CAFFEINE
     Indication: PRODUCT USED FOR UNKNOWN INDICATION
     Dosage: UNK UNK, QD (PATIENT TOOK EXCEDRYN DURING THE NIGHT)
     Route: 065

REACTIONS (6)
  - Migraine [Recovering/Resolving]
  - Tachycardia [Recovering/Resolving]
  - Malaise [Recovering/Resolving]
  - Hypertension [Recovering/Resolving]
  - Headache [Recovering/Resolving]
  - Drug interaction [Unknown]

NARRATIVE: CASE EVENT DATE: 20210203
